FAERS Safety Report 12860189 (Version 1)
Quarter: 2016Q4

REPORT INFORMATION
  Report Type: Spontaneous
  Country: US (occurrence: US)
  Receive Date: 20161019
  Receipt Date: 20161019
  Transmission Date: 20170207
  Serious: No
  Sender: FDA-Public Use
  Company Number: US-LUPIN PHARMACEUTICALS INC.-E2B_00005510

PATIENT
  Age: 76 Year
  Sex: Female
  Weight: 49.49 kg

DRUGS (10)
  1. ALLEGRA [Concomitant]
     Active Substance: FEXOFENADINE HYDROCHLORIDE
     Indication: PRODUCT USED FOR UNKNOWN INDICATION
     Route: 065
  2. VITAMIN D [Concomitant]
     Active Substance: CHOLECALCIFEROL
     Indication: PRODUCT USED FOR UNKNOWN INDICATION
     Route: 065
  3. ZYRTEC [Concomitant]
     Active Substance: CETIRIZINE HYDROCHLORIDE
     Indication: HYPERSENSITIVITY
     Dosage: 5 MG
     Route: 048
  4. LISINOPRIL 2.5MG TABLETS [Suspect]
     Active Substance: LISINOPRIL
     Route: 048
     Dates: start: 20160419, end: 20160511
  5. FOLIC ACID. [Concomitant]
     Active Substance: FOLIC ACID
     Indication: PRODUCT USED FOR UNKNOWN INDICATION
     Route: 065
  6. PRILOSEC (OMEPRAZOLE) [Concomitant]
     Active Substance: OMEPRAZOLE MAGNESIUM
     Indication: PRODUCT USED FOR UNKNOWN INDICATION
     Route: 065
  7. PATADAY [Concomitant]
     Active Substance: OLOPATADINE HYDROCHLORIDE
     Indication: PRODUCT USED FOR UNKNOWN INDICATION
     Route: 065
  8. LISINOPRIL 2.5MG TABLETS [Suspect]
     Active Substance: LISINOPRIL
     Indication: PRODUCT USED FOR UNKNOWN INDICATION
     Route: 048
     Dates: start: 2014, end: 20160419
  9. LISINOPRIL 2.5MG TABLETS [Suspect]
     Active Substance: LISINOPRIL
     Route: 048
     Dates: start: 20160511
  10. MURO 128 [Concomitant]
     Active Substance: SODIUM CHLORIDE
     Indication: PRODUCT USED FOR UNKNOWN INDICATION
     Route: 065

REACTIONS (3)
  - Dizziness [Not Recovered/Not Resolved]
  - Hypersensitivity [Not Recovered/Not Resolved]
  - Abnormal loss of weight [Not Recovered/Not Resolved]

NARRATIVE: CASE EVENT DATE: 20160419
